FAERS Safety Report 10993090 (Version 1)
Quarter: 2015Q2

REPORT INFORMATION
  Report Type: Spontaneous
  Country: US (occurrence: US)
  Receive Date: 20150407
  Receipt Date: 20150407
  Transmission Date: 20150821
  Serious: No
  Sender: FDA-Public Use
  Company Number: US-ASTRAZENECA-2015SE31391

PATIENT
  Age: 83 Year
  Sex: Female

DRUGS (11)
  1. NEXIUM [Suspect]
     Active Substance: ESOMEPRAZOLE MAGNESIUM
     Dosage: UNK
     Route: 048
  2. BETADINE [Suspect]
     Active Substance: POVIDONE-IODINE
     Indication: BLISTER
     Dosage: UNK
     Route: 065
     Dates: start: 1979
  3. CODEINE [Suspect]
     Active Substance: CODEINE
     Indication: NAUSEA
     Dosage: UNK
     Route: 065
  4. CODEINE [Suspect]
     Active Substance: CODEINE
     Indication: RESTLESSNESS
     Dosage: UNK
     Route: 065
  5. BETADINE [Suspect]
     Active Substance: POVIDONE-IODINE
     Indication: PRURITUS
     Dosage: UNK
     Route: 065
     Dates: start: 1979
  6. CODEINE [Suspect]
     Active Substance: CODEINE
     Indication: VOMITING
     Dosage: UNK
     Route: 065
  7. LEVAQUIN [Suspect]
     Active Substance: LEVOFLOXACIN
     Dosage: UNK
     Route: 065
  8. VITAMIN K [Suspect]
     Active Substance: PHYTONADIONE
     Dosage: UNK
     Route: 065
  9. MORPHINE SULFATE. [Suspect]
     Active Substance: MORPHINE SULFATE
     Dosage: NON-AZ PRODUCT
     Route: 065
  10. CODEINE [Suspect]
     Active Substance: CODEINE
     Indication: PAIN
     Dosage: UNK
     Route: 065
  11. ATORVASTATIN CALCIUM. [Suspect]
     Active Substance: ATORVASTATIN CALCIUM
     Indication: BLOOD CHOLESTEROL INCREASED
     Dosage: UNK
     Route: 065

REACTIONS (1)
  - Drug hypersensitivity [Unknown]
